FAERS Safety Report 8161608-3 (Version None)
Quarter: 2012Q1

REPORT INFORMATION
  Report Type: 
  Country: None (occurrence: None)
  Receive Date: 20120224
  Receipt Date: 20120217
  Transmission Date: 20120608
  Serious: Yes (Hospitalization, Other)
  Sender: FDA-Public Use
  Company Number: PHHY2009DE45393

PATIENT
  Sex: Female

DRUGS (9)
  1. TEGRETOL-XR [Interacting]
     Dosage: 400 MG, BID
     Route: 048
     Dates: end: 20120201
  2. TEGRETOL-XR [Interacting]
     Dosage: 500 MG, BID
     Route: 048
     Dates: start: 20120201
  3. VITASPRINT [Suspect]
  4. LEVOTHYROXINE SODIUM [Interacting]
     Indication: THYROID THERAPY
  5. ASPIRIN [Concomitant]
  6. BISOPROLOL FUMARATE [Concomitant]
  7. DIOVAN [Concomitant]
  8. CALCITRIOL [Concomitant]
  9. CALCIUM [Concomitant]

REACTIONS (7)
  - PULMONARY EMBOLISM [None]
  - DRUG INTERACTION [None]
  - TRIGEMINAL NERVE DISORDER [None]
  - COMA [None]
  - DRUG INEFFECTIVE [None]
  - OSTEOARTHRITIS [None]
  - HYPERTENSION [None]
